FAERS Safety Report 8772831 (Version 3)
Quarter: 2014Q2

REPORT INFORMATION
  Report Type: Spontaneous
  Country: US (occurrence: US)
  Receive Date: 20120907
  Receipt Date: 20131017
  Transmission Date: 20141212
  Serious: Yes (Other)
  Sender: FDA-Public Use
  Company Number: US-PFIZER INC-2012218786

PATIENT
  Age: 71 Year
  Sex: Female
  Weight: 61.7 kg

DRUGS (8)
  1. SUTENT [Suspect]
     Indication: OVARIAN CANCER
     Dosage: 50 MG, DAILY CYCLIC (4 WEEKS ON FOLLOWED BY 2 WEEKS OFF)
     Route: 048
     Dates: start: 20120723
  2. SOLU-MEDROL [Suspect]
     Dosage: UNK
  3. VITAMIN C [Suspect]
     Dosage: UNK
  4. DECADRON [Suspect]
     Dosage: UNK
  5. AVASTIN [Concomitant]
     Indication: OVARIAN CANCER
     Dosage: UNK
     Route: 042
     Dates: start: 20120302
  6. INVANZ [Concomitant]
     Indication: URINARY TRACT INFECTION
     Dosage: UNK, DAILY
     Dates: start: 201208
  7. HYDROCODONE [Concomitant]
     Indication: PAIN
     Dosage: UNK
  8. CALCIUM [Concomitant]
     Dosage: UNK

REACTIONS (13)
  - Brain oedema [Unknown]
  - Aphagia [Unknown]
  - Oral mucosal blistering [Unknown]
  - Stomatitis [Recovered/Resolved]
  - Mucosal pain [Unknown]
  - Weight decreased [Recovering/Resolving]
  - Arthralgia [Unknown]
  - Feeling hot [Unknown]
  - Skin disorder [Unknown]
  - Pain in extremity [Unknown]
  - Gait disturbance [Unknown]
  - Headache [Unknown]
  - Pruritus [Unknown]
